FAERS Safety Report 7777620-X (Version None)
Quarter: 2011Q3

REPORT INFORMATION
  Report Type: 
  Country: None (occurrence: None)
  Receive Date: 20110926
  Receipt Date: 20110914
  Transmission Date: 20111222
  Serious: Yes (Hospitalization)
  Sender: FDA-Public Use
  Company Number: JP-UCBSA-041430

PATIENT
  Age: 8 Year

DRUGS (4)
  1. PHENOBARBITAL TAB [Suspect]
  2. ACETAZOLAMIDE [Suspect]
     Route: 048
  3. KEPPRA [Suspect]
     Indication: EPILEPSY
     Dosage: 20 MG/KG
     Route: 048
     Dates: start: 20110801, end: 20110907
  4. VALPROATE SODIUM [Suspect]
     Route: 048

REACTIONS (2)
  - ANAEMIA [None]
  - CARDIO-RESPIRATORY ARREST [None]
